FAERS Safety Report 7747187-0 (Version None)
Quarter: 2011Q3

REPORT INFORMATION
  Report Type: 
  Country: None (occurrence: None)
  Receive Date: 20110913
  Receipt Date: 20110907
  Transmission Date: 20111222
  Serious: Yes (Other)
  Sender: FDA-Public Use
  Company Number: CA-PFIZER INC-2011209751

PATIENT
  Age: 56 Year
  Sex: Female

DRUGS (7)
  1. TRIMIPRAMINE [Concomitant]
     Indication: DEPRESSION
     Dosage: 25 MG, 1X/DAY
     Route: 048
  2. LOVAZA [Concomitant]
     Indication: SUPPLEMENTATION THERAPY
     Dosage: 5 ML, 1X/DAY
     Route: 048
  3. RABEPRAZOLE [Concomitant]
     Indication: GASTRIC ULCER
     Dosage: 10 MG, 1X/DAY
     Route: 048
  4. COENZYME A [Concomitant]
     Indication: SUPPLEMENTATION THERAPY
     Dosage: 100 MG, 1X/DAY
     Route: 048
  5. XALATAN [Suspect]
     Indication: GLAUCOMA
     Dosage: 1 GTT IN BOTH EYES, 1X/DAY
     Route: 047
     Dates: start: 20040101
  6. VITAMIN D [Concomitant]
     Indication: SUPPLEMENTATION THERAPY
     Dosage: 1000 IU, ALTERNATE DAY
  7. ASCORBIC ACID [Concomitant]
     Indication: SUPPLEMENTATION THERAPY
     Dosage: 1000 IU, ALTERNATE DAY

REACTIONS (1)
  - EYE LASER SURGERY [None]
